FAERS Safety Report 9067023 (Version 3)
Quarter: 2015Q1

REPORT INFORMATION
  Report Type: Spontaneous
  Country: US (occurrence: US)
  Receive Date: 20130214
  Receipt Date: 20150223
  Transmission Date: 20150721
  Serious: Yes (Hospitalization)
  Sender: FDA-Public Use
  Company Number: US-BAYER-2013-017212

PATIENT
  Age: 46 Year
  Sex: Female
  Weight: 95.24 kg

DRUGS (8)
  1. AMOXIL [Concomitant]
     Active Substance: AMOXICILLIN
     Indication: DYSPHONIA
  2. AMOXIL [Concomitant]
     Active Substance: AMOXICILLIN
     Indication: COUGH
  3. PREDNISONE. [Concomitant]
     Active Substance: PREDNISONE
  4. ALBUTEROL. [Concomitant]
     Active Substance: ALBUTEROL
  5. CYMBALTA [Concomitant]
     Active Substance: DULOXETINE HYDROCHLORIDE
  6. IBUPROFEN. [Concomitant]
     Active Substance: IBUPROFEN
  7. YASMIN [Suspect]
     Active Substance: DROSPIRENONE\ETHINYL ESTRADIOL
     Dosage: UNK
     Dates: start: 2005, end: 200604
  8. VICODIN ES [Concomitant]
     Active Substance: ACETAMINOPHEN\HYDROCODONE BITARTRATE
     Dosage: UNK UNK, HS

REACTIONS (9)
  - Deep vein thrombosis [Recovered/Resolved]
  - General physical health deterioration [Recovered/Resolved]
  - Thrombosis [None]
  - Injury [Recovered/Resolved]
  - Pain in extremity [Recovered/Resolved]
  - Abdominal pain [None]
  - Peripheral arterial occlusive disease [None]
  - Skin discolouration [Recovered/Resolved]
  - Iliac artery occlusion [None]

NARRATIVE: CASE EVENT DATE: 200604
